FAERS Safety Report 16570319 (Version 1)
Quarter: 2019Q3

REPORT INFORMATION
  Report Type: Spontaneous
  Country: GB (occurrence: GB)
  Receive Date: 20190715
  Receipt Date: 20190715
  Transmission Date: 20191004
  Serious: Yes (Disabling, Other)
  Sender: FDA-Public Use
  Company Number: GB-SA-2019SA186202

PATIENT
  Age: 28 Year
  Sex: Female

DRUGS (1)
  1. DUPIXENT [Suspect]
     Active Substance: DUPILUMAB
     Indication: DERMATITIS ATOPIC
     Dosage: 300 MG, QW
     Route: 042
     Dates: start: 20190416, end: 20190627

REACTIONS (11)
  - Impaired work ability [Unknown]
  - Emotional distress [Unknown]
  - Skin exfoliation [Unknown]
  - Alopecia [Unknown]
  - Lower respiratory tract infection [Unknown]
  - Psychiatric symptom [Unknown]
  - Eczema [Unknown]
  - Rash erythematous [Unknown]
  - Product use issue [Unknown]
  - Trichorrhexis [Unknown]
  - Skin hypertrophy [Unknown]

NARRATIVE: CASE EVENT DATE: 2019
